FAERS Safety Report 6634941-1 (Version None)
Quarter: 2010Q1

REPORT INFORMATION
  Report Type: 
  Country: None (occurrence: None)
  Receive Date: 20100315
  Receipt Date: 20100219
  Transmission Date: 20100710
  Serious: Yes (Hospitalization)
  Sender: FDA-Public Use
  Company Number: US-PFIZER INC-2010028610

PATIENT
  Age: 8 Month
  Sex: Female
  Weight: 8 kg

DRUGS (3)
  1. OMNICEF [Suspect]
     Indication: EAR INFECTION
     Dosage: UNK
     Dates: start: 20050102
  2. IBUPROFEN [Suspect]
     Indication: EAR INFECTION
     Dosage: UNK
     Dates: start: 20050102, end: 20050102
  3. ACETAMINOPHEN [Suspect]
     Indication: PAIN
     Dosage: 160 MG, 1 IN 6 HOUR
     Route: 048
     Dates: start: 20050102, end: 20050105

REACTIONS (9)
  - ACCIDENTAL OVERDOSE [None]
  - ALANINE AMINOTRANSFERASE INCREASED [None]
  - ASPARTATE AMINOTRANSFERASE INCREASED [None]
  - BLOOD ALKALINE PHOSPHATASE INCREASED [None]
  - DECREASED APPETITE [None]
  - DEHYDRATION [None]
  - LIVER FUNCTION TEST ABNORMAL [None]
  - PROTHROMBIN TIME PROLONGED [None]
  - TACHYCARDIA [None]
